FAERS Safety Report 9387957 (Version 1)
Quarter: 2013Q3

REPORT INFORMATION
  Report Type: Spontaneous
  Country: US (occurrence: US)
  Receive Date: 20130708
  Receipt Date: 20130708
  Transmission Date: 20140515
  Serious: Yes (Disabling)
  Sender: FDA-Public Use
  Company Number: US-GLAXOSMITHKLINE-A1029099A

PATIENT
  Age: 44 Year
  Sex: Female

DRUGS (13)
  1. BENLYSTA [Suspect]
     Indication: SYSTEMIC LUPUS ERYTHEMATOSUS
     Dosage: 690MG UNKNOWN
     Route: 042
  2. LYRICA [Concomitant]
  3. ASPIRIN [Concomitant]
  4. SYNTHROID [Concomitant]
  5. ZOLPIDEM TARTRATE [Concomitant]
  6. NORVASC [Concomitant]
  7. CELEBREX [Concomitant]
  8. PLAQUENIL [Concomitant]
  9. CYMBALTA [Concomitant]
  10. PREDNISONE [Concomitant]
  11. MULTIVITAMIN [Concomitant]
  12. TYLENOL [Concomitant]
  13. BENADRYL [Concomitant]

REACTIONS (6)
  - Nausea [Recovering/Resolving]
  - Vomiting [Unknown]
  - Swelling face [Unknown]
  - Hypoaesthesia [Unknown]
  - Paraesthesia oral [Unknown]
  - Headache [Unknown]
